FAERS Safety Report 25930804 (Version 5)
Quarter: 2025Q4

REPORT INFORMATION
  Report Type: Spontaneous
  Country: JP (occurrence: JP)
  Receive Date: 20251016
  Receipt Date: 20251201
  Transmission Date: 20260117
  Serious: Yes (Hospitalization, Other)
  Sender: NOVO NORDISK
  Company Number: JP-NOVOPROD-1539338

PATIENT
  Age: 68 Year
  Sex: Male
  Weight: 70 kg

DRUGS (1)
  1. CONCIZUMAB [Suspect]
     Active Substance: CONCIZUMAB
     Indication: Factor VIII deficiency
     Dosage: 17.5 MG, QD
     Route: 058
     Dates: start: 20240601

REACTIONS (7)
  - Carpal tunnel decompression [Recovered/Resolved]
  - Hypoaesthesia [Recovered/Resolved]
  - Condition aggravated [Recovered/Resolved]
  - Post procedural haemorrhage [Recovered/Resolved]
  - Peripheral swelling [Recovered/Resolved]
  - Soluble fibrin monomer complex increased [Recovered/Resolved]
  - Prothrombin fragment 1.2 increased [Recovered/Resolved]

NARRATIVE: CASE EVENT DATE: 20250929
